FAERS Safety Report 7867074-7 (Version None)
Quarter: 2011Q4

REPORT INFORMATION
  Report Type: 
  Country: None (occurrence: None)
  Receive Date: 20111028
  Receipt Date: 20111019
  Transmission Date: 20120403
  Serious: Yes (Hospitalization)
  Sender: FDA-Public Use
  Company Number: US-BRISTOL-MYERS SQUIBB COMPANY-15294853

PATIENT
  Age: 78 Year
  Sex: Male
  Weight: 73 kg

DRUGS (16)
  1. PANTOPRAZOLE [Concomitant]
  2. CETUXIMAB [Suspect]
     Indication: NON-SMALL CELL LUNG CANCER
     Dosage: RECENT INF:08SSEP10,NO OF INF:6,DURATION:28DAYS. INTERRUPTED ON 15SEP2010
     Route: 042
     Dates: start: 20100811
  3. LACTULOSE [Concomitant]
     Indication: CONSTIPATION
     Route: 048
     Dates: start: 20100816, end: 20100908
  4. PLAVIX [Concomitant]
  5. MINOCYCLINE HCL [Concomitant]
     Dates: start: 20100811, end: 20100921
  6. ALLOPURINOL [Concomitant]
  7. COLACE [Concomitant]
     Indication: CONSTIPATION
     Dates: start: 20100816
  8. ZOCOR [Concomitant]
  9. CARBOPLATIN [Suspect]
     Indication: NON-SMALL CELL LUNG CANCER
     Dosage: DURATION:21DAYS,RECENT INF:01SEP10,NO OF INF:2
     Route: 042
     Dates: start: 20100811, end: 20100901
  10. GEMCITABINE [Suspect]
     Indication: NON-SMALL CELL LUNG CANCER
     Dosage: DURATION:28DAYS,RECENT INF:08SEP10,NO OF INF:4
     Route: 042
     Dates: start: 20100811, end: 20100908
  11. FOLIC ACID [Concomitant]
     Dates: start: 20100809
  12. ZOMETA [Concomitant]
  13. MEGACE [Concomitant]
     Dates: start: 20100901
  14. LEVOTHYROXINE SODIUM [Concomitant]
  15. MORPHINE [Concomitant]
     Dates: start: 20100825
  16. AMLODIPINE [Concomitant]

REACTIONS (2)
  - DIARRHOEA [None]
  - HYPOTENSION [None]
